FAERS Safety Report 21858796 (Version 3)
Quarter: 2023Q1

REPORT INFORMATION
  Report Type: Spontaneous
  Country: JP (occurrence: JP)
  Receive Date: 20230113
  Receipt Date: 20230203
  Transmission Date: 20230418
  Serious: Yes (Other)
  Sender: FDA-Public Use
  Company Number: JP-ABBVIE-4267868

PATIENT
  Age: 34 Year
  Sex: Female

DRUGS (2)
  1. ADALIMUMAB [Suspect]
     Active Substance: ADALIMUMAB
     Indication: Crohn^s disease
     Route: 058
  2. ADALIMUMAB [Suspect]
     Active Substance: ADALIMUMAB
     Dosage: DOUBLE-DOSE ADMINISTRATION
     Route: 058

REACTIONS (2)
  - Takayasu^s arteritis [Recovered/Resolved]
  - Crohn^s disease [Recovering/Resolving]
